FAERS Safety Report 6231447-9 (Version None)
Quarter: 2009Q2

REPORT INFORMATION
  Report Type: 
  Country: None (occurrence: None)
  Receive Date: 20090616
  Receipt Date: 20090609
  Transmission Date: 20091009
  Serious: Yes (Congenital Anomaly)
  Sender: FDA-Public Use
  Company Number: US-GENENTECH-246009

PATIENT
  Sex: Female

DRUGS (1)
  1. OMALIZUMAB [Suspect]
     Indication: DRUG USE FOR UNKNOWN INDICATION
     Dosage: UNK
     Route: 064
     Dates: start: 20031028

REACTIONS (2)
  - ANOMALY OF EXTERNAL EAR CONGENITAL [None]
  - DRUG EXPOSURE DURING PREGNANCY [None]
